FAERS Safety Report 22993261 (Version 2)
Quarter: 2023Q4

REPORT INFORMATION
  Report Type: Spontaneous
  Country: US (occurrence: US)
  Receive Date: 20230927
  Receipt Date: 20231114
  Transmission Date: 20240109
  Serious: No
  Sender: FDA-Public Use
  Company Number: US-PFIZER INC-202300306830

PATIENT
  Age: 55 Year
  Sex: Female
  Weight: 94.331 kg

DRUGS (14)
  1. PAXLOVID [Suspect]
     Active Substance: NIRMATRELVIR\RITONAVIR
     Indication: COVID-19 treatment
     Dosage: 1 DF, 2X/DAY
     Dates: start: 20230919
  2. AMITRIPTYLINE HYDROCHLORIDE [Concomitant]
     Active Substance: AMITRIPTYLINE HYDROCHLORIDE
     Indication: Fibromyalgia
     Dosage: 37.4 MG, DAILY
     Dates: start: 1994
  3. OMEPRAZOLE [Concomitant]
     Active Substance: OMEPRAZOLE
     Dosage: 1 CAP, DAILY
     Dates: start: 1994
  4. LIPITOR [Concomitant]
     Active Substance: ATORVASTATIN CALCIUM
     Dosage: 1 DF, DAILY
     Dates: start: 2022
  5. CYMBALTA [Concomitant]
     Active Substance: DULOXETINE HYDROCHLORIDE
     Dosage: 1 PILL, DAILY
     Dates: start: 2021
  6. SINGULAIR [Concomitant]
     Active Substance: MONTELUKAST SODIUM
     Dosage: 1 PILL, DAILY
     Dates: start: 2010
  7. FAMOTIDINE [Concomitant]
     Active Substance: FAMOTIDINE
     Dosage: 2 PILLS, DAILY
     Dates: start: 2017
  8. NAPROXEN [Concomitant]
     Active Substance: NAPROXEN
     Indication: Pain
     Dosage: 1 PILL, AS NEEDED
  9. VITAMIN D3 [Concomitant]
     Active Substance: CHOLECALCIFEROL
     Dosage: 1 DF, DAILY
     Dates: start: 2021
  10. MINERALS\VITAMINS [Concomitant]
     Active Substance: MINERALS\VITAMINS
     Dosage: 1 DF, DAILY
     Dates: start: 2021
  11. GINKGO [Concomitant]
     Active Substance: GINKGO
     Dosage: 1 DF, DAILY
     Dates: start: 2023
  12. CETIRIZINE HYDROCHLORIDE [Concomitant]
     Active Substance: CETIRIZINE HYDROCHLORIDE
     Dosage: 2 PILLS, DAILY
     Dates: start: 2019
  13. BIOTIN [Concomitant]
     Active Substance: BIOTIN
     Dosage: 1 DF, DAILY
     Dates: start: 2022
  14. FERROUS SULFATE [Concomitant]
     Active Substance: FERROUS SULFATE
     Dosage: 325 MG, 3X/WEEK
     Dates: start: 2021

REACTIONS (4)
  - Dizziness [Recovered/Resolved]
  - Tongue discolouration [Recovered/Resolved]
  - Dysgeusia [Recovered/Resolved]
  - Incorrect dose administered [Unknown]

NARRATIVE: CASE EVENT DATE: 20230919
